FAERS Safety Report 6098225-5 (Version None)
Quarter: 2009Q1

REPORT INFORMATION
  Report Type: 
  Country: None (occurrence: None)
  Receive Date: 20090227
  Receipt Date: 20090223
  Transmission Date: 20090719
  Serious: Yes (Other)
  Sender: FDA-Public Use
  Company Number: US-ABBOTT-09P-163-0558681-00

PATIENT
  Sex: Female
  Weight: 45.4 kg

DRUGS (5)
  1. HUMIRA [Suspect]
     Indication: RHEUMATOID ARTHRITIS
     Route: 058
     Dates: start: 20070101, end: 20080201
  2. HUMIRA [Suspect]
     Route: 058
     Dates: start: 20081001, end: 20090101
  3. HUMIRA [Suspect]
     Route: 058
     Dates: start: 20090101
  4. MULTIPLE VITAMINS [Concomitant]
     Indication: ROUTINE HEALTH MAINTENANCE
  5. FISH OIL [Concomitant]
     Indication: ROUTINE HEALTH MAINTENANCE

REACTIONS (6)
  - DRY SKIN [None]
  - INFLAMMATION [None]
  - INJECTION SITE HAEMORRHAGE [None]
  - JOINT INJURY [None]
  - PRURITUS [None]
  - TENDON RUPTURE [None]
